FAERS Safety Report 8193753-0 (Version None)
Quarter: 2012Q1

REPORT INFORMATION
  Report Type: 
  Country: None (occurrence: None)
  Receive Date: 20120308
  Receipt Date: 20120228
  Transmission Date: 20120608
  Serious: Yes (Hospitalization)
  Sender: FDA-Public Use
  Company Number: FR-ASTRAZENECA-2011SE46379

PATIENT
  Age: 73 Year
  Sex: Male

DRUGS (7)
  1. RAMIPRIL [Suspect]
     Route: 048
     Dates: start: 20110607
  2. CRESTOR [Suspect]
     Route: 048
     Dates: start: 20110607, end: 20110617
  3. CRESTOR [Suspect]
     Route: 048
     Dates: start: 20110622
  4. CLOPIDOGREL BISULFATE AND ASPIRIN [Suspect]
     Route: 048
     Dates: start: 20110607
  5. BISOPROLOL FUMARATE [Suspect]
     Route: 048
     Dates: start: 20110607
  6. TRAMADOL HCL [Suspect]
     Route: 048
     Dates: start: 20110607, end: 20110617
  7. CLOPIDOGREL BISULFATE [Suspect]
     Route: 048
     Dates: start: 20110607

REACTIONS (1)
  - CHOLESTASIS [None]
